FAERS Safety Report 24400152 (Version 3)
Quarter: 2025Q1

REPORT INFORMATION
  Report Type: Report from Study
  Country: CN (occurrence: CN)
  Receive Date: 20241005
  Receipt Date: 20250104
  Transmission Date: 20250408
  Serious: Yes (Hospitalization)
  Sender: ACCORD
  Company Number: CN-HENLIUS-24CN017360

PATIENT
  Age: 69 Year
  Sex: Female
  Weight: 74.5 kg

DRUGS (9)
  1. TRASTUZUMAB [Suspect]
     Active Substance: TRASTUZUMAB
     Indication: Invasive ductal breast carcinoma
     Dosage: 600 MILLIGRAM, Q3W?STRENGTH: 150 MILLIGRAM, IV DRIP
     Route: 042
     Dates: start: 20240710, end: 20240710
  2. DOCETAXEL [Suspect]
     Active Substance: DOCETAXEL
     Indication: Invasive ductal breast carcinoma
     Dosage: 150 MILLIGRAM, Q3W, IV DRIP
     Route: 042
     Dates: start: 20240710, end: 20240710
  3. PERTUZUMAB [Suspect]
     Active Substance: PERTUZUMAB
     Indication: Invasive ductal breast carcinoma
     Dosage: 840 MILLIGRAM, Q3W; IV DRIP
     Route: 042
     Dates: start: 20240710, end: 20240710
  4. DOCETAXEL [Suspect]
     Active Substance: DOCETAXEL
     Indication: Invasive ductal breast carcinoma
     Dosage: 150 MILLIGRAM, Q3WIV, DRIP
     Route: 042
     Dates: start: 20240731, end: 20240821
  5. TRASTUZUMAB [Suspect]
     Active Substance: TRASTUZUMAB
     Indication: Invasive ductal breast carcinoma
     Dosage: 450 MILLIGRAM, Q3W; IV DRIP?STRENGTH: 150 MILLIGRAM
     Route: 042
     Dates: start: 20240731, end: 20240821
  6. TRASTUZUMAB [Suspect]
     Active Substance: TRASTUZUMAB
     Indication: Invasive ductal breast carcinoma
     Dosage: UNK, Q3W?STRENGTH: 150 MILLIGRAM, IV DRIP
     Route: 042
     Dates: start: 20240920, end: 20240920
  7. PERTUZUMAB [Suspect]
     Active Substance: PERTUZUMAB
     Indication: Invasive ductal breast carcinoma
     Dosage: UNK, Q3W; IV DRIP
     Route: 042
     Dates: start: 20240920, end: 20240920
  8. DOCETAXEL [Suspect]
     Active Substance: DOCETAXEL
     Indication: Invasive ductal breast carcinoma
     Dosage: UNK, Q3W, IV DRIP
     Route: 042
     Dates: start: 20240920, end: 20240920
  9. PERTUZUMAB [Suspect]
     Active Substance: PERTUZUMAB
     Indication: Invasive ductal breast carcinoma
     Dosage: 420 MILLIGRAM, Q3W; IV DRIP
     Route: 042
     Dates: start: 20240731, end: 20240821

REACTIONS (1)
  - Atrial fibrillation [Recovering/Resolving]

NARRATIVE: CASE EVENT DATE: 20240910
